FAERS Safety Report 18457757 (Version 2)
Quarter: 2021Q2

REPORT INFORMATION
  Report Type: Spontaneous
  Country: US (occurrence: US)
  Receive Date: 20201103
  Receipt Date: 20210602
  Transmission Date: 20210717
  Serious: Yes (Other)
  Sender: FDA-Public Use
  Company Number: US-PFIZER INC-2020425795

PATIENT
  Age: 73 Year
  Sex: Female

DRUGS (1)
  1. IBRANCE [Suspect]
     Active Substance: PALBOCICLIB
     Indication: BREAST CANCER FEMALE
     Dosage: 125 MG, DAILY (X 3 WEEKS) 21DAYS
     Dates: start: 20171221

REACTIONS (3)
  - Product dose omission issue [Not Recovered/Not Resolved]
  - Neuropathy peripheral [Unknown]
  - Alopecia [Unknown]

NARRATIVE: CASE EVENT DATE: 20210520
